FAERS Safety Report 4380314-4 (Version None)
Quarter: 2004Q2

REPORT INFORMATION
  Report Type: 
  Country: None (occurrence: None)
  Receive Date: 20040616
  Receipt Date: 20040616
  Transmission Date: 20050107
  Serious: No
  Sender: FDA-Public Use
  Company Number: None

PATIENT
  Sex: Female
  Weight: 49.8957 kg

DRUGS (1)
  1. IRESSA [Suspect]

REACTIONS (8)
  - DIFFICULTY IN WALKING [None]
  - DRY SKIN [None]
  - DYSPNOEA [None]
  - HERPES SIMPLEX [None]
  - MEDICATION ERROR [None]
  - PNEUMONIA [None]
  - SKIN DISCOLOURATION [None]
  - WEIGHT DECREASED [None]
